FAERS Safety Report 4968725-7 (Version None)
Quarter: 2006Q2

REPORT INFORMATION
  Report Type: 
  Country: None (occurrence: None)
  Receive Date: 20060411
  Receipt Date: 20060331
  Transmission Date: 20061013
  Serious: Yes (Other)
  Sender: FDA-Public Use
  Company Number: US-JNJFOC-20060401328

PATIENT
  Sex: Female
  Weight: 147.42 kg

DRUGS (11)
  1. DURAGESIC-100 [Suspect]
     Route: 062
  2. DURAGESIC-100 [Suspect]
     Route: 062
  3. RELAFEN [Concomitant]
     Indication: ARTHRITIS
     Route: 048
  4. ALBUTEROL [Concomitant]
     Indication: ASTHMA
     Dosage: 4 PUFFS IN 24 HOURS, SINCE 1991
     Route: 055
  5. TRENTAL [Concomitant]
     Route: 048
  6. PROZAC [Concomitant]
     Indication: DEPRESSION
     Route: 048
  7. GLUCOPHAGE [Concomitant]
     Route: 048
  8. ALLOPURINOL [Concomitant]
     Route: 048
  9. PEPCID [Concomitant]
     Route: 048
  10. WELCHOL [Concomitant]
     Route: 048
  11. XANAX [Concomitant]
     Indication: ANXIETY
     Route: 048

REACTIONS (5)
  - APPLICATION SITE ERYTHEMA [None]
  - APPLICATION SITE IRRITATION [None]
  - DYSPEPSIA [None]
  - OESOPHAGEAL STENOSIS [None]
  - WEIGHT DECREASED [None]
